FAERS Safety Report 4976031-X (Version None)
Quarter: 2006Q1

REPORT INFORMATION
  Report Type: 
  Country: None (occurrence: None)
  Receive Date: 20060317
  Receipt Date: 20060307
  Transmission Date: 20060701
  Serious: Yes (Other)
  Sender: FDA-Public Use
  Company Number: GBWYE359902FEB06

PATIENT
  Age: 3 Year
  Sex: Male

DRUGS (1)
  1. REFACTO [Suspect]
     Indication: FACTOR VIII DEFICIENCY
     Dosage: 250-500 IU ON DEMAND   INTRAVENOUS
     Route: 042
     Dates: start: 20030203, end: 20060108

REACTIONS (3)
  - FACTOR VIII INHIBITION [None]
  - HAEMORRHAGE [None]
  - THERAPY NON-RESPONDER [None]
